FAERS Safety Report 9421931 (Version 2)
Quarter: 2013Q3

REPORT INFORMATION
  Report Type: Spontaneous
  Country: US (occurrence: US)
  Receive Date: 20130726
  Receipt Date: 20130827
  Transmission Date: 20140515
  Serious: No
  Sender: FDA-Public Use
  Company Number: US-PFIZER INC-2013216231

PATIENT
  Age: 57 Year
  Sex: Female

DRUGS (7)
  1. CELEBREX [Suspect]
     Dosage: UNK
  2. PREDNISONE [Suspect]
     Dosage: UNK
  3. ABILIFY [Suspect]
     Dosage: UNK
  4. CIPRO [Suspect]
     Dosage: UNK
  5. LAMICTAL [Suspect]
     Dosage: UNK
  6. DEMEROL [Suspect]
     Dosage: UNK
  7. DEPAKOTE [Suspect]
     Dosage: UNK

REACTIONS (1)
  - Drug hypersensitivity [Unknown]
